FAERS Safety Report 9697234 (Version 1)
Quarter: 2013Q4

REPORT INFORMATION
  Report Type: Spontaneous
  Country: IL (occurrence: IL)
  Receive Date: 20131120
  Receipt Date: 20131120
  Transmission Date: 20140711
  Serious: Yes (Hospitalization, Other)
  Sender: FDA-Public Use
  Company Number: IL-JNJFOC-20131104062

PATIENT
  Age: 44 Year
  Sex: Female
  Weight: 65.7 kg

DRUGS (10)
  1. DOXORUBICIN HYDROCHLORIDE (DOXIL) [Suspect]
     Indication: OVARIAN CANCER
     Dosage: 1.87 MG
     Route: 042
  2. DOXORUBICIN HYDROCHLORIDE (DOXIL) [Suspect]
     Indication: OVARIAN CANCER
     Route: 042
     Dates: start: 20130324
  3. EC145 [Suspect]
     Indication: OVARIAN CANCER
     Dosage: ON DAYS 1,3,5,15,17,19 OF A 4-WEEK CYCLE
     Route: 040
     Dates: start: 20130324
  4. EC145 [Suspect]
     Indication: OVARIAN CANCER
     Dosage: DAYS 1,3,5,15,17,19 OF A 4-WEEK CYCLE
     Route: 040
  5. PLACEBO [Suspect]
     Indication: OVARIAN CANCER
     Dosage: DAYS 1,3,5,15,17,19 OF A 4-WEEK CYCLE
     Route: 040
  6. PLACEBO [Suspect]
     Indication: OVARIAN CANCER
     Dosage: ON DAY 1,3,5,15,17,19 OF A 4-WEEK CYCLE
     Route: 040
     Dates: start: 20130324
  7. EC20 [Suspect]
     Indication: SINGLE PHOTON EMISSION COMPUTERISED TOMOGRAM
     Dosage: ONCE
     Route: 042
     Dates: start: 20130312, end: 20130312
  8. EC20 [Suspect]
     Indication: SINGLE PHOTON EMISSION COMPUTERISED TOMOGRAM
     Dosage: ONCE
     Route: 042
     Dates: start: 20130317, end: 20130317
  9. FOLIC ACID [Suspect]
     Indication: SINGLE PHOTON EMISSION COMPUTERISED TOMOGRAM
     Dosage: ONCE
     Route: 042
     Dates: start: 20130317, end: 20130317
  10. FOLIC ACID [Suspect]
     Indication: SINGLE PHOTON EMISSION COMPUTERISED TOMOGRAM
     Dosage: ONCE
     Route: 042
     Dates: start: 20130312, end: 20130312

REACTIONS (2)
  - Neutropenia [Unknown]
  - Intestinal obstruction [Not Recovered/Not Resolved]
